FAERS Safety Report 8740087 (Version 2)
Quarter: 2012Q4

REPORT INFORMATION
  Report Type: 
  Country: FR (occurrence: FR)
  Receive Date: 20120823
  Receipt Date: 20121002
  Transmission Date: 20130627
  Serious: Yes (Hospitalization)
  Sender: FDA-Public Use
  Company Number: FR-MERCK-1208FRA007420

PATIENT
  Age: 2 Year
  Sex: Female
  Weight: 18.5 kg

DRUGS (2)
  1. STROMECTOL [Suspect]
     Indication: ACARODERMATITIS
     Dosage: 3 mg, Once
     Route: 048
     Dates: start: 20120301, end: 20120301
  2. STROMECTOL [Suspect]
     Dosage: 3 mg, Once
     Dates: start: 20111208, end: 20111208

REACTIONS (1)
  - Pancreatitis acute [Recovered/Resolved]
